FAERS Safety Report 5042480-7 (Version None)
Quarter: 2006Q2

REPORT INFORMATION
  Report Type: 
  Country: None (occurrence: None)
  Receive Date: 20060627
  Receipt Date: 20060612
  Transmission Date: 20061013
  Serious: Yes (Death, Hospitalization)
  Sender: FDA-Public Use
  Company Number: HQWYE200013JUN06

PATIENT
  Age: 64 Year
  Sex: Male

DRUGS (4)
  1. MYLOTARG [Suspect]
     Indication: ACUTE MYELOID LEUKAEMIA
     Dosage: 9 MG/M^2 1X PER 1 DAY, INTRAVENOUS DRIP
     Route: 041
     Dates: start: 20060412, end: 20060412
  2. MYLOTARG [Suspect]
     Indication: ACUTE MYELOID LEUKAEMIA
     Dosage: 9 MG/M^2 1X PER 1 DAY, INTRAVENOUS DRIP
     Route: 041
     Dates: start: 20060426, end: 20060426
  3. NEUQUINON (UBIDECARENONE) [Concomitant]
  4. METHYCOBAL (MECOBALAMIN) [Concomitant]

REACTIONS (5)
  - ACUTE MYELOID LEUKAEMIA [None]
  - FEBRILE NEUTROPENIA [None]
  - HISTIOCYTOSIS HAEMATOPHAGIC [None]
  - MALIGNANT NEOPLASM PROGRESSION [None]
  - PULMONARY HAEMORRHAGE [None]
